FAERS Safety Report 11506349 (Version 1)
Quarter: 2015Q3

REPORT INFORMATION
  Report Type: Spontaneous
  Country: US (occurrence: US)
  Receive Date: 20150915
  Receipt Date: 20150915
  Transmission Date: 20151125
  Serious: No
  Sender: FDA-Public Use
  Company Number: US-ROCHE-790550

PATIENT
  Sex: Male

DRUGS (2)
  1. PEGASYS [Suspect]
     Active Substance: PEGINTERFERON ALFA-2A
     Indication: HEPATITIS C
     Route: 058
  2. RIBAVIRIN. [Suspect]
     Active Substance: RIBAVIRIN
     Indication: HEPATITIS C
     Route: 048

REACTIONS (21)
  - Decreased appetite [Unknown]
  - Odynophagia [Unknown]
  - Pain [Unknown]
  - Irritability [Unknown]
  - Headache [Unknown]
  - Weight decreased [Unknown]
  - Memory impairment [Unknown]
  - Blood pressure normal [Unknown]
  - Drug administration error [Unknown]
  - Ocular hyperaemia [Unknown]
  - Photophobia [Unknown]
  - Dry mouth [Unknown]
  - Fatigue [Unknown]
  - Eye disorder [Unknown]
  - Insomnia [Unknown]
  - Eye pain [Unknown]
  - Arthralgia [Unknown]
  - Muscle spasms [Unknown]
  - Nausea [Unknown]
  - Dizziness [Unknown]
  - Pharyngeal disorder [Unknown]
